FAERS Safety Report 14961930 (Version 1)
Quarter: 2018Q2

REPORT INFORMATION
  Report Type: Spontaneous
  Country: TW (occurrence: TW)
  Receive Date: 20180601
  Receipt Date: 20180601
  Transmission Date: 20180711
  Serious: Yes (Hospitalization)
  Sender: FDA-Public Use
  Company Number: TW-009507513-1805TWN015198

PATIENT
  Age: 68 Year
  Sex: Female

DRUGS (6)
  1. DAPTOMYCIN. [Suspect]
     Active Substance: DAPTOMYCIN
     Indication: SEPSIS
     Dosage: 10 MG/KG/DAY
     Route: 065
  2. AMPHOTERICIN B. [Concomitant]
     Active Substance: AMPHOTERICIN B
     Dosage: 50 MG EVERY DAY
  3. FLUCONAZOLE. [Concomitant]
     Active Substance: FLUCONAZOLE
     Dosage: 4 MG/KG/DAY
  4. FLUCYTOSINE. [Concomitant]
     Active Substance: FLUCYTOSINE
     Dosage: 40 MG/KG/DAY, DIVIDED IN 4 DOSES
  5. FLUCONAZOLE. [Concomitant]
     Active Substance: FLUCONAZOLE
     Dosage: 6 MG/KG/DAY
  6. DORIPENEM. [Concomitant]
     Active Substance: DORIPENEM
     Dosage: 500 MG,EVERY 8 HOURS

REACTIONS (1)
  - Urinary tract obstruction [Recovered/Resolved]
